FAERS Safety Report 5838359-0 (Version None)
Quarter: 2008Q3

REPORT INFORMATION
  Report Type: 
  Country: None (occurrence: None)
  Receive Date: 20080806
  Receipt Date: 20080723
  Transmission Date: 20090109
  Serious: Yes (Hospitalization, Other)
  Sender: FDA-Public Use
  Company Number: 15198

PATIENT
  Age: 51 Year
  Sex: Female

DRUGS (5)
  1. MORPHINE SULFATE ER 30 TABLETS (ETHEX CORPORATION) [Suspect]
     Indication: PAIN
     Dosage: PRN ORALLY
     Route: 048
     Dates: start: 20080611
  2. OXYGEN [Concomitant]
  3. PREVACID [Concomitant]
  4. NOVVASC [Concomitant]
  5. PAXIL [Concomitant]

REACTIONS (6)
  - AMNESIA [None]
  - FALL [None]
  - HEPATIC FAILURE [None]
  - OVERDOSE [None]
  - PHARMACEUTICAL PRODUCT COMPLAINT [None]
  - SPEECH DISORDER [None]
